FAERS Safety Report 9503560 (Version 1)
Quarter: 2013Q3

REPORT INFORMATION
  Report Type: Spontaneous
  Country: CN (occurrence: CN)
  Receive Date: 20130906
  Receipt Date: 20130906
  Transmission Date: 20140515
  Serious: Yes (Other)
  Sender: FDA-Public Use
  Company Number: CN-009507513-1309CHN000814

PATIENT
  Age: 78 Year
  Sex: Male

DRUGS (1)
  1. TIENAM [Suspect]
     Indication: PNEUMONIA
     Dosage: 500 MG, TID
     Route: 042
     Dates: start: 20110616, end: 20110618

REACTIONS (1)
  - Epilepsy [Recovered/Resolved]
